FAERS Safety Report 10574476 (Version 1)
Quarter: 2014Q4

REPORT INFORMATION
  Report Type: Spontaneous
  Country: PL (occurrence: PL)
  Receive Date: 20141110
  Receipt Date: 20141110
  Transmission Date: 20150529
  Serious: Yes (Other)
  Sender: FDA-Public Use
  Company Number: PL-GLAXOSMITHKLINE-PL2014GSK018177

PATIENT
  Sex: Male
  Weight: 79 kg

DRUGS (1)
  1. ACITRETIN. [Suspect]
     Active Substance: ACITRETIN
     Indication: PSORIASIS
     Dosage: 50 MG, QD
     Route: 048
     Dates: start: 201103, end: 20110726

REACTIONS (2)
  - Transaminases increased [Recovered/Resolved]
  - Lipids increased [Recovered/Resolved]
